FAERS Safety Report 20750805 (Version 4)
Quarter: 2022Q2

REPORT INFORMATION
  Report Type: Report from Study
  Country: FR (occurrence: None)
  Receive Date: 20220426
  Receipt Date: 20220627
  Transmission Date: 20220721
  Serious: Yes (Hospitalization)
  Sender: FDA-Public Use
  Company Number: FR-ROCHE-3078503

PATIENT
  Age: 68 Year
  Sex: Male
  Weight: 75 kg

DRUGS (3)
  1. ATEZOLIZUMAB [Suspect]
     Active Substance: ATEZOLIZUMAB
     Indication: Bladder transitional cell carcinoma
     Dosage: ON THE SAME DAY, PATIENT RECEIVED MOST RECENT DOSE OF ATEZOLIZUMAB.
     Route: 041
     Dates: start: 20220328
  2. BCG VACCINE [Suspect]
     Active Substance: BCG VACCINE
     Indication: Bladder transitional cell carcinoma
     Dosage: ON 13/APR/2022, PATIENT RECEIVED MOST RECENT DOSE OF BCG PRIOR TO AE.
     Route: 065
     Dates: start: 20220328
  3. IMOVANE [Concomitant]
     Active Substance: ZOPICLONE
     Indication: Insomnia
     Route: 048

REACTIONS (2)
  - Asthenia [Not Recovered/Not Resolved]
  - General physical condition abnormal [Recovered/Resolved]

NARRATIVE: CASE EVENT DATE: 20220413
